FAERS Safety Report 22694874 (Version 4)
Quarter: 2023Q4

REPORT INFORMATION
  Report Type: Report from Study
  Country: ZA (occurrence: ZA)
  Receive Date: 20230712
  Receipt Date: 20231006
  Transmission Date: 20240110
  Serious: Yes (Other)
  Sender: FDA-Public Use
  Company Number: ZA-002147023-NVSC2023ZA040092

PATIENT
  Age: 43 Year
  Sex: Female

DRUGS (5)
  1. OFATUMUMAB [Suspect]
     Active Substance: OFATUMUMAB
     Indication: Relapsing-remitting multiple sclerosis
     Dosage: 20 MG, QW
     Route: 058
     Dates: start: 20230218
  2. OFATUMUMAB [Suspect]
     Active Substance: OFATUMUMAB
     Dosage: 2ND INJECTION
     Route: 058
     Dates: start: 20230225
  3. OFATUMUMAB [Suspect]
     Active Substance: OFATUMUMAB
     Dosage: 3RD INJECTION
     Route: 058
     Dates: start: 20230304
  4. OFATUMUMAB [Suspect]
     Active Substance: OFATUMUMAB
     Dosage: 4TH INJECTION
     Route: 058
     Dates: start: 20230318
  5. OFATUMUMAB [Suspect]
     Active Substance: OFATUMUMAB
     Dosage: 20 MG, QMO
     Route: 058

REACTIONS (24)
  - Polymyositis [Unknown]
  - Thyroid hormones decreased [Unknown]
  - Feeling abnormal [Unknown]
  - Pain [Unknown]
  - Myalgia [Not Recovered/Not Resolved]
  - Blood pressure increased [Unknown]
  - Asthenia [Unknown]
  - SARS-CoV-2 test positive [Unknown]
  - Dysphonia [Unknown]
  - Malaise [Unknown]
  - Muscle spasms [Not Recovered/Not Resolved]
  - Pyrexia [Unknown]
  - Nausea [Not Recovered/Not Resolved]
  - Fatigue [Not Recovered/Not Resolved]
  - Pyrexia [Recovered/Resolved]
  - Palpitations [Unknown]
  - Chest pain [Unknown]
  - Pain in extremity [Unknown]
  - Headache [Unknown]
  - Influenza [Recovering/Resolving]
  - Oropharyngeal pain [Unknown]
  - Respiratory tract congestion [Unknown]
  - Influenza A virus test positive [Unknown]
  - Nausea [Recovered/Resolved]

NARRATIVE: CASE EVENT DATE: 20230218
